FAERS Safety Report 8887404 (Version 2)
Quarter: 2013Q1

REPORT INFORMATION
  Report Type: Spontaneous
  Country: IL (occurrence: IL)
  Receive Date: 20121105
  Receipt Date: 20130221
  Transmission Date: 20140127
  Serious: Yes (Death)
  Sender: FDA-Public Use
  Company Number: IL-ELI_LILLY_AND_COMPANY-IL201211001171

PATIENT
  Sex: Female
  Weight: 66 kg

DRUGS (10)
  1. FORTEO [Suspect]
     Indication: OSTEOPOROSIS
     Dosage: 20 UG, QD
     Route: 058
     Dates: start: 20110612
  2. LEVEMIR [Concomitant]
     Dosage: 36 U, UNK
  3. NOVORAPID [Concomitant]
     Dosage: 32 U, UNK
  4. ACETYLSALICYLIC ACID [Concomitant]
     Dosage: 1000 MG, UNK
  5. CYMBALTA [Concomitant]
     Dosage: 60 MG, UNK
  6. PENTOXIFYLLINE [Concomitant]
     Dosage: 400 UNK, UNK
  7. OMEPRADEX [Concomitant]
     Dosage: 20 MG, UNK
  8. ENALAPRIL [Concomitant]
     Dosage: 20 MG, UNK
  9. ATENOLOL [Concomitant]
     Dosage: 25 MG, UNK
  10. LIPITOR [Concomitant]
     Dosage: 20 MG, UNK

REACTIONS (1)
  - Cardiac arrest [Fatal]
